FAERS Safety Report 8714752 (Version 4)
Quarter: 2012Q4

REPORT INFORMATION
  Report Type: Report from Study
  Country: US (occurrence: US)
  Receive Date: 20120809
  Receipt Date: 20120911
  Transmission Date: 20130627
  Serious: Yes (Hospitalization, Other)
  Sender: FDA-Public Use
  Company Number: US-BRISTOL-MYERS SQUIBB COMPANY-16833444

PATIENT
  Age: 33 Year
  Sex: Female
  Weight: 79 kg

DRUGS (6)
  1. IPILIMUMAB [Suspect]
     Indication: MALIGNANT MELANOMA
     Dosage: 231 mg:26Mar12-09May2012 (3 rd dose),237 mg:last dose on 31May2012,. No of course:4
     Route: 042
     Dates: start: 20120326
  2. PREDNISONE [Concomitant]
     Indication: RASH
     Dates: start: 20120515
  3. HYDROCHLOROTHIAZIDE [Concomitant]
  4. PRILOSEC [Concomitant]
  5. OXYCODONE [Concomitant]
  6. LYRICA [Concomitant]

REACTIONS (2)
  - Abdominal pain [Recovered/Resolved]
  - Headache [Recovered/Resolved]
